FAERS Safety Report 7702122-6 (Version None)
Quarter: 2011Q3

REPORT INFORMATION
  Report Type: 
  Country: None (occurrence: None)
  Receive Date: 20110822
  Receipt Date: 20110818
  Transmission Date: 20111222
  Serious: Yes (Other)
  Sender: FDA-Public Use
  Company Number: JP-PFIZER INC-2011167287

PATIENT
  Age: 82 Year
  Sex: Female

DRUGS (3)
  1. RIZE [Concomitant]
     Dosage: UNK
     Route: 048
  2. VOLTAREN [Concomitant]
     Dosage: UNK
     Route: 048
  3. LIPITOR [Suspect]
     Dosage: 10 MG, UNK
     Route: 048

REACTIONS (1)
  - AMNESIA [None]
